FAERS Safety Report 24343243 (Version 1)
Quarter: 2024Q3

REPORT INFORMATION
  Report Type: Spontaneous
  Country: CN (occurrence: CN)
  Receive Date: 20240920
  Receipt Date: 20240920
  Transmission Date: 20241017
  Serious: Yes (Life-Threatening)
  Sender: JOHNSON AND JOHNSON
  Company Number: CN-JNJFOC-20240931266

PATIENT
  Sex: Male
  Weight: 0.75 kg

DRUGS (1)
  1. CHILDRENS MOTRIN [Suspect]
     Active Substance: IBUPROFEN
     Indication: Patent ductus arteriosus
     Dosage: NASOGASTRIC FEEDING FOR 3 DAYS AT 13:42
     Route: 045
     Dates: start: 20240813, end: 20240815

REACTIONS (3)
  - Off label use [Unknown]
  - Small intestinal perforation [Recovering/Resolving]
  - Intra-abdominal haemorrhage [Recovering/Resolving]

NARRATIVE: CASE EVENT DATE: 20240813
